FAERS Safety Report 23859751 (Version 2)
Quarter: 2024Q3

REPORT INFORMATION
  Report Type: Spontaneous
  Country: CA (occurrence: CA)
  Receive Date: 20240515
  Receipt Date: 20240822
  Transmission Date: 20241016
  Serious: Yes (Hospitalization, Other)
  Sender: SANDOZ
  Company Number: CA-SANDOZ-SDZ2024CA048339

PATIENT
  Age: 3 Decade
  Sex: Male

DRUGS (5)
  1. ARIPIPRAZOLE [Suspect]
     Active Substance: ARIPIPRAZOLE
     Indication: Evidence based treatment
     Dosage: UNK
     Route: 048
  2. ARIPIPRAZOLE [Suspect]
     Active Substance: ARIPIPRAZOLE
     Indication: Bipolar disorder
  3. QUETIAPINE [Suspect]
     Active Substance: QUETIAPINE
     Dosage: 25-100MG PO QHS
     Route: 048
  4. QUETIAPINE [Suspect]
     Active Substance: QUETIAPINE
     Indication: Bipolar disorder
     Dosage: 25-100MG PO QHS
     Route: 048
  5. QUETIAPINE [Suspect]
     Active Substance: QUETIAPINE
     Indication: Evidence based treatment
     Dosage: UNK, QD
     Route: 048

REACTIONS (10)
  - Apathy [Unknown]
  - Depressed mood [Unknown]
  - Drug dependence [Unknown]
  - Libido decreased [Unknown]
  - Nicotine dependence [Unknown]
  - Condition aggravated [Recovered/Resolved]
  - Sedation [Unknown]
  - Off label use [Recovered/Resolved]
  - Substance use disorder [Recovered/Resolved]
  - Depressed mood [Unknown]
